FAERS Safety Report 17631820 (Version 3)
Quarter: 2020Q3

REPORT INFORMATION
  Report Type: Report from Study
  Country: US (occurrence: US)
  Receive Date: 20200406
  Receipt Date: 20200710
  Transmission Date: 20201102
  Serious: Yes (Death, Other)
  Sender: FDA-Public Use
  Company Number: US-GILEAD-2020-0455596

PATIENT
  Age: 64 Year
  Sex: Male
  Weight: 75.28 kg

DRUGS (23)
  1. JANUVIA [Concomitant]
     Active Substance: SITAGLIPTIN PHOSPHATE
  2. LINZESS [Concomitant]
     Active Substance: LINACLOTIDE
  3. ENOXAPARIN [Concomitant]
     Active Substance: ENOXAPARIN
     Dosage: 40 MG, Q24H
  4. OXYCONTIN [Concomitant]
     Active Substance: OXYCODONE HYDROCHLORIDE
     Dosage: 10 MG QD AND 20 MG QD
  5. LEVOFLOXACIN. [Concomitant]
     Active Substance: LEVOFLOXACIN
  6. BREO ELLIPTA [Concomitant]
     Active Substance: FLUTICASONE FUROATE\VILANTEROL TRIFENATATE
     Dosage: 200?25 MCG, 1 INHALATION DAILY
     Route: 055
  7. PANTOPRAZOLE [Concomitant]
     Active Substance: PANTOPRAZOLE
     Dosage: 40 MG, QD AC BREAKFAST
  8. RAMELTEON [Concomitant]
     Active Substance: RAMELTEON
     Dosage: 8 MG, QD BEDTIME
  9. ATORVASTATIN [Concomitant]
     Active Substance: ATORVASTATIN
     Dosage: Q40 MG, QD BEDTIME
  10. CEFDINIR. [Concomitant]
     Active Substance: CEFDINIR
  11. LANSOPRAZOLE. [Concomitant]
     Active Substance: LANSOPRAZOLE
  12. PREDNISONE. [Concomitant]
     Active Substance: PREDNISONE
     Dosage: 20 MG, QD BREAKFAST
  13. NALOXONE [Concomitant]
     Active Substance: NALOXONE
     Dosage: 0.1 MG
  14. OXYCODONE/APAP [OXYCODONE HYDROCHLORIDE;PARACETAMOL] [Concomitant]
  15. INSULIN LISPRO [Concomitant]
     Active Substance: INSULIN LISPRO
     Dosage: 8 IU, TID MEALS; DAILY BEDTIME
  16. PREGABALIN. [Concomitant]
     Active Substance: PREGABALIN
     Dosage: 300 MG, Q8H
  17. AMBRISENTAN [Suspect]
     Active Substance: AMBRISENTAN
     Indication: PULMONARY ARTERIAL HYPERTENSION
     Dosage: 10 MG, QD BEDTIME
     Route: 065
     Dates: start: 20190401
  18. AMLODIPINE;BENAZEPRIL [Concomitant]
  19. VENLAFAXINE [Concomitant]
     Active Substance: VENLAFAXINE HYDROCHLORIDE
     Dosage: 37.5 MG DAILY AT BREAKFAST, 150 MG DAILY AT BEDTIME
  20. IPRATROPIUM?ALBUTEROL [Concomitant]
     Active Substance: ALBUTEROL\IPRATROPIUM
     Dosage: 3 ML, Q6H
  21. TADALAFIL. [Concomitant]
     Active Substance: TADALAFIL
     Indication: PULMONARY ARTERIAL HYPERTENSION
     Dosage: 20 MG, QD
  22. ASPIRIN (E.C.) [Concomitant]
     Active Substance: ASPIRIN
     Dosage: 325 MG, QD BREAKFAST
  23. LANTUS [Concomitant]
     Active Substance: INSULIN GLARGINE
     Dosage: 10 IU, QD AT BEDTIME

REACTIONS (1)
  - Death [Fatal]

NARRATIVE: CASE EVENT DATE: 20200319
